FAERS Safety Report 4327846-2 (Version None)
Quarter: 2004Q1

REPORT INFORMATION
  Report Type: 
  Country: None (occurrence: None)
  Receive Date: 20040325
  Receipt Date: 20040305
  Transmission Date: 20041129
  Serious: Yes (Other)
  Sender: FDA-Public Use
  Company Number: PT-JNJFOC-20040302154

PATIENT
  Age: 10 Year
  Sex: Male
  Weight: 64 kg

DRUGS (2)
  1. CONCERTA [Suspect]
     Indication: ATTENTION DEFICIT/HYPERACTIVITY DISORDER
     Dosage: 36 MG, IN 1 DAY, ORAL
     Route: 048
     Dates: start: 20040214, end: 20040228
  2. CONCERTA [Suspect]
     Indication: PSYCHOMOTOR HYPERACTIVITY
     Dosage: 36 MG, IN 1 DAY, ORAL
     Route: 048
     Dates: start: 20040214, end: 20040228

REACTIONS (5)
  - BACK PAIN [None]
  - CHEST PAIN [None]
  - DELUSION [None]
  - DIPLOPIA [None]
  - HEADACHE [None]
